FAERS Safety Report 8710145 (Version 2)
Quarter: 2012Q4

REPORT INFORMATION
  Report Type: Report from Study
  Country: US (occurrence: US)
  Receive Date: 20120806
  Receipt Date: 20121030
  Transmission Date: 20130627
  Serious: No
  Sender: FDA-Public Use
  Company Number: US-009507513-1207USA010109

PATIENT

DRUGS (4)
  1. MK-8908 [Suspect]
     Dosage: UNK, Unknown
  2. PEGINTERFERON ALFA-2A [Suspect]
     Dosage: UNK, Unknown
  3. STUDY DRUG (UNSPECIFIED) [Suspect]
     Indication: HEPATITIS C
     Dosage: UNK, Unknown
  4. STUDY DRUG (UNSPECIFIED) [Suspect]
     Indication: HEPATITIS C
     Dosage: UNK, Unknown

REACTIONS (1)
  - No adverse event [Unknown]
